FAERS Safety Report 9753799 (Version 2)
Quarter: 2013Q4

REPORT INFORMATION
  Report Type: Spontaneous
  Country: US (occurrence: US)
  Receive Date: 20131213
  Receipt Date: 20131213
  Transmission Date: 20140711
  Serious: No
  Sender: FDA-Public Use
  Company Number: US-GILEAD-2010-0026541

PATIENT
  Age: 39 Year
  Sex: Female

DRUGS (10)
  1. LETAIRIS [Suspect]
     Indication: PULMONARY ARTERIAL HYPERTENSION
     Route: 048
     Dates: start: 200807
  2. HYDROCODONE [Concomitant]
  3. REVATIO [Concomitant]
  4. NORVIR [Concomitant]
  5. PREZISTA [Concomitant]
  6. ATRIPLA [Concomitant]
  7. FUROSEMIDE [Concomitant]
  8. ALBUTEROL [Concomitant]
  9. POTASSIUM [Concomitant]
  10. DIFLUCAN [Concomitant]

REACTIONS (1)
  - Liver function test abnormal [Recovered/Resolved]
